FAERS Safety Report 5165509-4 (Version None)
Quarter: 2006Q4

REPORT INFORMATION
  Report Type: 
  Country: None (occurrence: None)
  Receive Date: 20061206
  Receipt Date: 20060419
  Transmission Date: 20070319
  Serious: Yes (Other)
  Sender: FDA-Public Use
  Company Number: 2006UW06966

PATIENT
  Age: 62 Year
  Sex: Female
  Weight: 88 kg

DRUGS (9)
  1. ARIMIDEX [Suspect]
     Indication: BREAST CANCER FEMALE
     Route: 048
     Dates: start: 20030401
  2. ZETIA [Concomitant]
     Dates: start: 20040101
  3. VERAPAMIL [Concomitant]
  4. LORAZEPAM [Concomitant]
  5. POTASSIUM CHLORIDE [Concomitant]
  6. PAXIL [Concomitant]
  7. ASPIRIN [Concomitant]
  8. CALCIUM WITH VITAMIN D [Concomitant]
  9. HYDROCHLOROTHIAZIDE [Concomitant]

REACTIONS (9)
  - BLOOD ALKALINE PHOSPHATASE INCREASED [None]
  - BLOOD AMYLASE INCREASED [None]
  - BLOOD CHOLESTEROL INCREASED [None]
  - BLOOD TRIGLYCERIDES INCREASED [None]
  - DEHYDROEPIANDROSTERONE INCREASED [None]
  - DEHYDROEPIANDROSTERONE TEST [None]
  - HYPERTRICHOSIS [None]
  - LIPASE INCREASED [None]
  - LIVER FUNCTION TEST ABNORMAL [None]
